FAERS Safety Report 8320156-8 (Version None)
Quarter: 2012Q2

REPORT INFORMATION
  Report Type: 
  Country: None (occurrence: None)
  Receive Date: 20120430
  Receipt Date: 20120419
  Transmission Date: 20120825
  Serious: Yes (Hospitalization)
  Sender: FDA-Public Use
  Company Number: US-BIOGENIDEC-2012BI011825

PATIENT
  Age: 56 Year
  Sex: Male

DRUGS (2)
  1. TYSABRI [Suspect]
     Indication: MULTIPLE SCLEROSIS
     Route: 042
     Dates: start: 20100825
  2. TYSABRI [Suspect]
     Route: 042
     Dates: start: 20100825

REACTIONS (6)
  - FALL [None]
  - MULTIPLE SCLEROSIS [None]
  - EXCORIATION [None]
  - MULTIPLE SCLEROSIS RELAPSE [None]
  - HEAD INJURY [None]
  - DRUG INEFFECTIVE [None]
